FAERS Safety Report 7516948-5 (Version None)
Quarter: 2011Q2

REPORT INFORMATION
  Report Type: 
  Country: None (occurrence: None)
  Receive Date: 20110502
  Receipt Date: 20110125
  Transmission Date: 20111010
  Serious: Yes (Other)
  Sender: FDA-Public Use
  Company Number: AMAG201100012

PATIENT
  Age: 66 Year
  Sex: Female
  Weight: 102.9 kg

DRUGS (17)
  1. REQUIP [Concomitant]
  2. FLUTICASONE (FLUTICASONE PROPIONATE) [Concomitant]
  3. LIDODERM [Concomitant]
  4. CELEBREX [Concomitant]
  5. LYRICA [Concomitant]
  6. FERAHEME [Suspect]
     Indication: ANAEMIA
     Dosage: 360 MG, SINGLE, INTRAVENOUS
     Route: 042
     Dates: start: 20110124, end: 20110124
  7. FISH OIL (FISH OIL) [Concomitant]
  8. LISINOPRIL (LISINOPRIL DIHYDRATE) [Concomitant]
  9. SUCRALFATE [Concomitant]
  10. VITAMIN D [Concomitant]
  11. BACLOFEN [Concomitant]
  12. DOXEPIN HCL [Concomitant]
  13. LASIX [Concomitant]
  14. PROZAC [Concomitant]
  15. VITAMIN B12 (HYDROXOCOBALAMIN) [Concomitant]
  16. PROTONIX [Concomitant]
  17. SEROQUEL [Concomitant]

REACTIONS (1)
  - HYPERSENSITIVITY [None]
